FAERS Safety Report 4664518-9 (Version None)
Quarter: 2005Q2

REPORT INFORMATION
  Report Type: 
  Country: None (occurrence: None)
  Receive Date: 20050518
  Receipt Date: 20050510
  Transmission Date: 20051028
  Serious: Yes (Hospitalization)
  Sender: FDA-Public Use
  Company Number: BW-BOEHRINGER INGELHEIM PHARMACEUTICALS, INC.-2005-BP-07768BP

PATIENT
  Age: 44 Year
  Sex: Male

DRUGS (4)
  1. VIRAMUNE [Suspect]
     Indication: HIV INFECTION
     Route: 048
     Dates: start: 20050302, end: 20050318
  2. SUSTIVA [Suspect]
     Indication: HIV INFECTION
     Route: 048
     Dates: start: 20040503, end: 20050301
  3. TRIZIVIR [Concomitant]
     Dates: end: 20050318
  4. WELLBUTRIN [Concomitant]
     Dates: start: 20040210

REACTIONS (6)
  - CONFUSIONAL STATE [None]
  - DELIRIUM [None]
  - DISORIENTATION [None]
  - INSOMNIA [None]
  - PERSONALITY CHANGE [None]
  - THINKING ABNORMAL [None]
